FAERS Safety Report 9649680 (Version 3)
Quarter: 2013Q4

REPORT INFORMATION
  Report Type: Spontaneous
  Country: DE (occurrence: DE)
  Receive Date: 20131028
  Receipt Date: 20131127
  Transmission Date: 20140711
  Serious: Yes (Other)
  Sender: FDA-Public Use
  Company Number: DE-ROCHE-1273037

PATIENT
  Age: 61 Year
  Sex: Male

DRUGS (9)
  1. ROACTEMRA [Suspect]
     Indication: RHEUMATOID ARTHRITIS
     Route: 042
     Dates: start: 201303, end: 20130816
  2. ARCOXIA [Suspect]
     Indication: RHEUMATOID ARTHRITIS
     Route: 048
     Dates: start: 2010, end: 20130801
  3. ARAVA [Suspect]
     Indication: RHEUMATOID ARTHRITIS
     Route: 048
     Dates: start: 20130722, end: 20130801
  4. PREDNISOLON [Concomitant]
     Indication: RHEUMATOID ARTHRITIS
     Route: 048
     Dates: start: 20130617
  5. ALVESCO [Concomitant]
     Indication: ASTHMA EXERCISE INDUCED
     Route: 055
     Dates: start: 2010
  6. VOTUM (GERMANY) [Concomitant]
     Indication: HYPERTENSION
     Route: 048
     Dates: start: 201210
  7. CARMEN (GERMANY) [Concomitant]
     Indication: HYPERTENSION
     Route: 048
     Dates: start: 201210
  8. PROCORALAN [Concomitant]
     Indication: HYPERTENSION
     Route: 048
     Dates: start: 201211
  9. NATRILIX [Concomitant]
     Indication: HYPERTENSION
     Route: 048

REACTIONS (2)
  - Rash maculo-papular [Recovered/Resolved]
  - Drug eruption [Recovered/Resolved]
